FAERS Safety Report 18912162 (Version 1)
Quarter: 2021Q1

REPORT INFORMATION
  Report Type: Spontaneous
  Country: GB (occurrence: GB)
  Receive Date: 20210218
  Receipt Date: 20210218
  Transmission Date: 20210420
  Serious: Yes (Other)
  Sender: FDA-Public Use
  Company Number: GB-GLAXOSMITHKLINE-GB2021037395

PATIENT
  Age: 40 Year
  Sex: Female
  Weight: 84 kg

DRUGS (9)
  1. AMLODIPIN [Concomitant]
     Active Substance: AMLODIPINE BESYLATE
     Indication: HYPERTENSION
     Dosage: UNK
     Route: 065
  2. ASTRAZENECA COVID?19 VACCINE [Suspect]
     Active Substance: AZD-1222
     Indication: PRODUCT USED FOR UNKNOWN INDICATION
     Dosage: UNK
     Route: 065
     Dates: start: 20200209
  3. BECLOMETASONE DIPROPIONATE [Concomitant]
     Active Substance: BECLOMETHASONE DIPROPIONATE
     Indication: ASTHMA
     Dosage: UNK
     Route: 065
  4. DECAPEPTYL SR [Concomitant]
     Active Substance: TRIPTORELIN
     Indication: ENDOMETRIOSIS
     Dosage: UNK
     Route: 065
  5. SERTRALINE [Concomitant]
     Active Substance: SERTRALINE HYDROCHLORIDE
     Indication: ANXIETY
     Dosage: UNK
     Route: 065
  6. LEVOTHYROXINE. [Concomitant]
     Active Substance: LEVOTHYROXINE
     Indication: HYPOTHYROIDISM
     Dosage: UNK
     Route: 065
  7. VENTOLIN [Concomitant]
     Active Substance: ALBUTEROL SULFATE
     Indication: ASTHMA
     Dosage: UNK
     Route: 065
  8. 3TC [Suspect]
     Active Substance: LAMIVUDINE
     Indication: PRODUCT USED FOR UNKNOWN INDICATION
     Dosage: UNK
     Route: 065
  9. RAMIPRIL. [Concomitant]
     Active Substance: RAMIPRIL
     Indication: HYPERTENSION
     Dosage: UNK
     Route: 065

REACTIONS (14)
  - Chills [Recovered/Resolved]
  - Muscle spasms [Recovered/Resolved]
  - Insomnia [Recovering/Resolving]
  - Confusional state [Recovering/Resolving]
  - Dizziness [Recovering/Resolving]
  - Nausea [Recovering/Resolving]
  - Asthma [Recovering/Resolving]
  - Decreased appetite [Recovering/Resolving]
  - Cough [Recovering/Resolving]
  - Dizziness [Unknown]
  - Pyrexia [Recovering/Resolving]
  - Headache [Recovering/Resolving]
  - Myalgia [Recovering/Resolving]
  - Exposure during pregnancy [Unknown]

NARRATIVE: CASE EVENT DATE: 20210209
